FAERS Safety Report 21228709 (Version 4)
Quarter: 2023Q1

REPORT INFORMATION
  Report Type: Report from Study
  Country: DE (occurrence: DE)
  Receive Date: 20220818
  Receipt Date: 20230117
  Transmission Date: 20230417
  Serious: Yes (Other)
  Sender: FDA-Public Use
  Company Number: DE-TAKEDA-2022TUS056600

PATIENT
  Age: 3 Year
  Sex: Male

DRUGS (62)
  1. TEDUGLUTIDE [Suspect]
     Active Substance: TEDUGLUTIDE
     Indication: Short-bowel syndrome
     Dosage: 0.5 MILLIGRAM, QD
     Route: 042
     Dates: start: 20201015, end: 20210615
  2. TEDUGLUTIDE [Suspect]
     Active Substance: TEDUGLUTIDE
     Indication: Short-bowel syndrome
     Dosage: 0.5 MILLIGRAM, QD
     Route: 042
     Dates: start: 20201015, end: 20210615
  3. TEDUGLUTIDE [Suspect]
     Active Substance: TEDUGLUTIDE
     Indication: Short-bowel syndrome
     Dosage: 0.5 MILLIGRAM, QD
     Route: 042
     Dates: start: 20201015, end: 20210615
  4. TEDUGLUTIDE [Suspect]
     Active Substance: TEDUGLUTIDE
     Indication: Short-bowel syndrome
     Dosage: 0.5 MILLIGRAM, QD
     Route: 042
     Dates: start: 20201015, end: 20210615
  5. TEDUGLUTIDE [Suspect]
     Active Substance: TEDUGLUTIDE
     Dosage: 0.55 MILLIGRAM, QD
     Route: 042
     Dates: start: 20210706, end: 20220615
  6. TEDUGLUTIDE [Suspect]
     Active Substance: TEDUGLUTIDE
     Dosage: 0.55 MILLIGRAM, QD
     Route: 042
     Dates: start: 20210706, end: 20220615
  7. TEDUGLUTIDE [Suspect]
     Active Substance: TEDUGLUTIDE
     Dosage: 0.55 MILLIGRAM, QD
     Route: 042
     Dates: start: 20210706, end: 20220615
  8. TEDUGLUTIDE [Suspect]
     Active Substance: TEDUGLUTIDE
     Dosage: 0.55 MILLIGRAM, QD
     Route: 042
     Dates: start: 20210706, end: 20220615
  9. TEDUGLUTIDE [Suspect]
     Active Substance: TEDUGLUTIDE
     Dosage: 0.5 MILLIGRAM, QD
     Route: 042
     Dates: start: 20220714
  10. TEDUGLUTIDE [Suspect]
     Active Substance: TEDUGLUTIDE
     Dosage: 0.5 MILLIGRAM, QD
     Route: 042
     Dates: start: 20220714
  11. TEDUGLUTIDE [Suspect]
     Active Substance: TEDUGLUTIDE
     Dosage: 0.5 MILLIGRAM, QD
     Route: 042
     Dates: start: 20220714
  12. TEDUGLUTIDE [Suspect]
     Active Substance: TEDUGLUTIDE
     Dosage: 0.5 MILLIGRAM, QD
     Route: 042
     Dates: start: 20220714
  13. AMPICILLIN [Concomitant]
     Active Substance: AMPICILLIN
     Indication: Urinary tract infection
     Dosage: 500 MILLIGRAM, TID
     Route: 042
     Dates: start: 202204, end: 202204
  14. AMPICILLIN [Concomitant]
     Active Substance: AMPICILLIN
     Indication: Inflammation
  15. BETAMETHASONE [Concomitant]
     Active Substance: BETAMETHASONE
     Indication: Phimosis
     Dosage: 0.10 PERCENT, BID
     Route: 061
     Dates: start: 20220512
  16. TROSPIUM CHLORIDE [Concomitant]
     Active Substance: TROSPIUM CHLORIDE
     Indication: Anticholinergic syndrome
     Dosage: 0.75 MILLIGRAM, QD
     Route: 054
     Dates: start: 2021
  17. METAMIZOLE SODIUM [Concomitant]
     Active Substance: METAMIZOLE SODIUM
     Indication: Pain
     Dosage: 240 MILLIGRAM
     Route: 048
     Dates: start: 202205
  18. KONAKION [Concomitant]
     Active Substance: PHYTONADIONE
     Indication: Vitamin K deficiency
     Dosage: 2 MILLIGRAM, QD
     Route: 042
     Dates: start: 20190807, end: 20191022
  19. KONAKION [Concomitant]
     Active Substance: PHYTONADIONE
     Dosage: 3 MILLIGRAM, QD
     Route: 042
     Dates: start: 20191023, end: 20210822
  20. KONAKION [Concomitant]
     Active Substance: PHYTONADIONE
     Dosage: 5 MILLIGRAM, QD
     Route: 042
     Dates: start: 20210823, end: 20220308
  21. KONAKION [Concomitant]
     Active Substance: PHYTONADIONE
     Dosage: 5 MILLIGRAM, 3/WEEK
     Route: 042
     Dates: start: 20220309
  22. ORGARAN [Concomitant]
     Active Substance: DANAPAROID SODIUM
     Indication: Spontaneous heparin-induced thrombocytopenia syndrome
     Dosage: 100 INTERNATIONAL UNIT, BID
     Route: 058
     Dates: start: 20190705, end: 20191022
  23. ORGARAN [Concomitant]
     Active Substance: DANAPAROID SODIUM
     Dosage: 130 INTERNATIONAL UNIT, BID
     Route: 058
     Dates: start: 20191023, end: 20200618
  24. ORGARAN [Concomitant]
     Active Substance: DANAPAROID SODIUM
     Dosage: 140 INTERNATIONAL UNIT, BID
     Route: 058
     Dates: start: 20200619, end: 20200704
  25. ORGARAN [Concomitant]
     Active Substance: DANAPAROID SODIUM
     Dosage: 160 INTERNATIONAL UNIT, BID
     Route: 058
     Dates: start: 20200705, end: 20200831
  26. ORGARAN [Concomitant]
     Active Substance: DANAPAROID SODIUM
     Dosage: 180 INTERNATIONAL UNIT, BID
     Route: 058
     Dates: start: 20200901, end: 20201019
  27. ORGARAN [Concomitant]
     Active Substance: DANAPAROID SODIUM
     Dosage: 200 INTERNATIONAL UNIT, BID
     Route: 058
     Dates: start: 20201020, end: 20210823
  28. OMEPRAZOLE [Concomitant]
     Active Substance: OMEPRAZOLE
     Indication: Gastric pH decreased
     Dosage: 5 MILLIGRAM, QD
     Route: 048
     Dates: start: 20190807, end: 20200618
  29. OMEPRAZOLE [Concomitant]
     Active Substance: OMEPRAZOLE
     Dosage: 8 MILLIGRAM, QD
     Route: 048
     Dates: start: 20200619, end: 20200831
  30. OMEPRAZOLE [Concomitant]
     Active Substance: OMEPRAZOLE
     Dosage: 10 MILLIGRAM, QD
     Route: 048
     Dates: start: 20200901, end: 20210414
  31. OMEPRAZOLE [Concomitant]
     Active Substance: OMEPRAZOLE
     Dosage: 15 MILLIGRAM, BID
     Route: 048
     Dates: start: 20220519
  32. OMEPRAZOLE [Concomitant]
     Active Substance: OMEPRAZOLE
     Dosage: 10 MILLIGRAM, BID
     Route: 048
     Dates: start: 20210823, end: 20220518
  33. URSODIOL [Concomitant]
     Active Substance: URSODIOL
     Indication: Bile acid malabsorption
     Dosage: 50 MILLIGRAM, BID
     Route: 048
     Dates: start: 20190807, end: 20191022
  34. URSODIOL [Concomitant]
     Active Substance: URSODIOL
     Dosage: 60 MILLIGRAM, BID
     Route: 048
     Dates: start: 20191023, end: 20200618
  35. URSODIOL [Concomitant]
     Active Substance: URSODIOL
     Dosage: 90 MILLIGRAM, BID
     Route: 048
     Dates: start: 20200619, end: 20200831
  36. URSODIOL [Concomitant]
     Active Substance: URSODIOL
     Dosage: 100 MILLIGRAM, BID
     Route: 048
     Dates: start: 20200901, end: 20210822
  37. URSODIOL [Concomitant]
     Active Substance: URSODIOL
     Dosage: 150 MILLIGRAM, BID
     Route: 048
     Dates: start: 20210823
  38. VITAMIN D [Concomitant]
     Active Substance: VITAMIN D NOS
     Indication: Vitamin D deficiency
     Dosage: 1000 INTERNATIONAL UNIT, QD
     Route: 048
     Dates: start: 20190807, end: 20220308
  39. VITAMIN D [Concomitant]
     Active Substance: VITAMIN D NOS
     Dosage: 1500 INTERNATIONAL UNIT, QD
     Route: 048
     Dates: start: 20220309
  40. VANCOMYCIN [Concomitant]
     Active Substance: VANCOMYCIN
     Indication: Sepsis
     Dosage: 120 MILLIGRAM, QID
     Route: 042
     Dates: start: 20201002, end: 20201002
  41. VANCOMYCIN [Concomitant]
     Active Substance: VANCOMYCIN
     Indication: Device related infection
     Dosage: 120 MILLIGRAM, TID
     Route: 042
     Dates: start: 20201003, end: 20201012
  42. VANCOMYCIN [Concomitant]
     Active Substance: VANCOMYCIN
     Dosage: 120 MILLIGRAM, QD
     Route: 042
     Dates: start: 20201013, end: 20201013
  43. VANCOMYCIN [Concomitant]
     Active Substance: VANCOMYCIN
     Dosage: 150 MILLIGRAM, BID
     Route: 042
     Dates: start: 20210515, end: 20210704
  44. VANCOMYCIN [Concomitant]
     Active Substance: VANCOMYCIN
     Dosage: 300 MILLIGRAM, TID
     Route: 042
     Dates: start: 202109, end: 20210930
  45. MEROPENEM [Concomitant]
     Active Substance: MEROPENEM
     Indication: Sepsis
     Dosage: 200 MILLIGRAM, TID
     Route: 042
     Dates: start: 20201002, end: 20201012
  46. MEROPENEM [Concomitant]
     Active Substance: MEROPENEM
     Indication: Device related infection
     Dosage: 200 MILLIGRAM, QID
     Route: 042
     Dates: start: 20201013, end: 20201013
  47. MEROPENEM [Concomitant]
     Active Substance: MEROPENEM
     Dosage: 200 MILLIGRAM, QD
     Route: 042
     Dates: start: 20201014, end: 20201014
  48. MEROPENEM [Concomitant]
     Active Substance: MEROPENEM
     Dosage: 220 MILLIGRAM, TID
     Route: 042
     Dates: start: 20210515, end: 20210610
  49. MEROPENEM [Concomitant]
     Active Substance: MEROPENEM
     Dosage: 220 MILLIGRAM, TID
     Route: 042
     Dates: start: 20210624, end: 20210705
  50. MEROPENEM [Concomitant]
     Active Substance: MEROPENEM
     Dosage: 280 MILLIGRAM, TID
     Route: 042
     Dates: start: 202109, end: 20210930
  51. METRONIDAZOLE [Concomitant]
     Active Substance: METRONIDAZOLE
     Indication: Sepsis
     Dosage: 100 MILLIGRAM, TID
     Route: 042
     Dates: start: 20210515, end: 20210518
  52. LINEZOLID [Concomitant]
     Active Substance: LINEZOLID
     Indication: Sepsis
     Dosage: 100 MILLIGRAM, TID
     Route: 042
     Dates: start: 20210516, end: 20210520
  53. CEFTAZIDIME [Concomitant]
     Active Substance: CEFTAZIDIME
     Indication: Sepsis
     Dosage: 20 MILLIGRAM
     Route: 042
     Dates: start: 20210521, end: 20210604
  54. PIPERACILLIN AND TAZOBACTAM [Concomitant]
     Active Substance: PIPERACILLIN SODIUM\TAZOBACTAM SODIUM
     Indication: Sepsis
     Dosage: 730 MILLIGRAM, TID
     Route: 042
     Dates: start: 20210610, end: 20210624
  55. FLUCONAZOLE [Concomitant]
     Active Substance: FLUCONAZOLE
     Indication: Sepsis
     Dosage: 60 MILLIGRAM, QD
     Route: 042
     Dates: start: 20210616, end: 20210623
  56. BACLOFEN [Concomitant]
     Active Substance: BACLOFEN
     Indication: Leukoencephalopathy
     Dosage: 8 MILLIGRAM, TID
     Route: 048
     Dates: start: 202107, end: 20210926
  57. BACLOFEN [Concomitant]
     Active Substance: BACLOFEN
     Dosage: 8 MILLIGRAM, TID
     Route: 048
     Dates: start: 20220309, end: 20220518
  58. BACLOFEN [Concomitant]
     Active Substance: BACLOFEN
     Dosage: 7.5 MILLIGRAM, BID
     Route: 048
     Dates: start: 20220519, end: 20220926
  59. BACLOFEN [Concomitant]
     Active Substance: BACLOFEN
     Dosage: 10 MILLIGRAM, QD
     Route: 048
     Dates: start: 20220519
  60. BACLOFEN [Concomitant]
     Active Substance: BACLOFEN
     Dosage: 7.5 MILLIGRAM, TID
     Route: 048
     Dates: start: 20210927, end: 20220308
  61. AMLODIPINE BESYLATE [Concomitant]
     Active Substance: AMLODIPINE BESYLATE
     Indication: Blood pressure management
     Dosage: 2.5 MILLIGRAM, BID
     Route: 048
     Dates: start: 20210823, end: 202204
  62. MELATONIN [Concomitant]
     Active Substance: MELATONIN
     Indication: Insomnia
     Dosage: 5 MILLIGRAM, QD
     Route: 048
     Dates: start: 20210823, end: 202201

REACTIONS (1)
  - Ascites [Not Recovered/Not Resolved]

NARRATIVE: CASE EVENT DATE: 20220610
